FAERS Safety Report 5622345-X (Version None)
Quarter: 2008Q1

REPORT INFORMATION
  Report Type: 
  Country: None (occurrence: None)
  Receive Date: 20080114
  Receipt Date: 20070716
  Transmission Date: 20080703
  Serious: Yes (Hospitalization)
  Sender: FDA-Public Use
  Company Number: A03200704645

PATIENT
  Age: 65 Year
  Sex: Male

DRUGS (4)
  1. PLAVIX [Suspect]
     Indication: PROPHYLAXIS
     Dosage: 75 MG QD - ORAL
     Route: 048
  2. ASPIRIN [Suspect]
     Indication: PROPHYLAXIS
     Dosage: 81 MG QD - ORAL
     Route: 048
  3. WARFARIN SODIUM [Suspect]
     Indication: CEREBROVASCULAR ACCIDENT PROPHYLAXIS
     Dosage: 5 MG QD - ORAL
     Route: 048
     Dates: start: 20070416, end: 20070606
  4. WARFARIN SODIUM [Suspect]
     Indication: EMBOLISM
     Dosage: 5 MG QD - ORAL
     Route: 048
     Dates: start: 20070416, end: 20070606

REACTIONS (2)
  - ANAEMIA [None]
  - GASTROINTESTINAL HAEMORRHAGE [None]
